FAERS Safety Report 4748099-7 (Version None)
Quarter: 2005Q3

REPORT INFORMATION
  Report Type: 
  Country: None (occurrence: None)
  Receive Date: 20050818
  Receipt Date: 20050407
  Transmission Date: 20060218
  Serious: Yes (Hospitalization)
  Sender: FDA-Public Use
  Company Number: US-MERCK-0504USA00991

PATIENT
  Age: 65 Year
  Sex: Male
  Weight: 102 kg

DRUGS (15)
  1. VIOXX [Suspect]
     Indication: OSTEOARTHRITIS
     Route: 048
     Dates: start: 20000715, end: 20021106
  2. VIOXX [Suspect]
     Route: 048
     Dates: start: 20000715, end: 20021106
  3. ASPIRIN [Concomitant]
     Route: 065
     Dates: start: 20001001
  4. ASPIRIN [Concomitant]
     Route: 065
     Dates: start: 19990101
  5. ALEVE [Concomitant]
     Indication: PAIN
     Route: 065
     Dates: start: 19900101
  6. ADVIL [Concomitant]
     Indication: PAIN
     Route: 065
     Dates: start: 19900101
  7. MOBIC [Concomitant]
     Route: 065
     Dates: start: 20020101, end: 20020901
  8. ACCUPRIL [Concomitant]
     Indication: BLOOD PRESSURE
     Route: 065
     Dates: start: 20001001
  9. ATACAND [Concomitant]
     Indication: HYPERTENSION
     Route: 065
     Dates: start: 19990101, end: 20001001
  10. TOPROL-XL [Concomitant]
     Indication: HYPERTENSION
     Route: 065
     Dates: start: 19980901, end: 20001001
  11. LOPRESSOR [Concomitant]
     Indication: HYPERTENSION
     Route: 065
     Dates: start: 20001001
  12. TYLENOL [Concomitant]
     Indication: PAIN
     Route: 065
     Dates: start: 19900101
  13. LIPITOR [Concomitant]
     Indication: BLOOD CHOLESTEROL INCREASED
     Route: 065
     Dates: start: 20000101
  14. HYDROCHLOROTHIAZIDE [Concomitant]
     Route: 065
  15. MOTRIN [Concomitant]
     Indication: PAIN
     Route: 065
     Dates: start: 19900101

REACTIONS (4)
  - ACUTE MYOCARDIAL INFARCTION [None]
  - BACK PAIN [None]
  - NERVE COMPRESSION [None]
  - OSTEOARTHRITIS [None]
